FAERS Safety Report 9466323 (Version 6)
Quarter: 2014Q4

REPORT INFORMATION
  Report Type: Report from Study
  Country: US (occurrence: US)
  Receive Date: 20130820
  Receipt Date: 20141007
  Transmission Date: 20150529
  Serious: Yes (Other)
  Sender: FDA-Public Use
  Company Number: US-ALEXION PHARMACEUTICALS INC.-A201301939

PATIENT

DRUGS (3)
  1. ANTINEOPLASTIC AGENTS [Concomitant]
     Active Substance: UNSPECIFIED INGREDIENT
     Indication: PRODUCT USED FOR UNKNOWN INDICATION
     Route: 065
  2. SOLIRIS [Suspect]
     Active Substance: ECULIZUMAB
     Indication: OFF LABEL USE
     Dosage: 900 MG, Q2W
     Route: 042
     Dates: start: 20130425
  3. SOLIRIS [Suspect]
     Active Substance: ECULIZUMAB
     Indication: PAROXYSMAL NOCTURNAL HAEMOGLOBINURIA
     Dosage: 600 MG, QW X 4
     Route: 042
     Dates: start: 20130328

REACTIONS (12)
  - Off label use [Unknown]
  - Cholecystitis acute [Unknown]
  - Mastocytosis [Unknown]
  - Platelet disorder [Unknown]
  - Blood bilirubin increased [Unknown]
  - Anaemia [Unknown]
  - Biopsy bone marrow abnormal [Unknown]
  - Haemolysis [Not Recovered/Not Resolved]
  - Anti-platelet antibody positive [Unknown]
  - Hypotension [Unknown]
  - Adverse event [Unknown]
  - Fatigue [Unknown]

NARRATIVE: CASE EVENT DATE: 20130718
